FAERS Safety Report 23432525 (Version 1)
Quarter: 2024Q1

REPORT INFORMATION
  Report Type: Spontaneous
  Country: TW (occurrence: TW)
  Receive Date: 20240123
  Receipt Date: 20240123
  Transmission Date: 20240409
  Serious: Yes (Life-Threatening, Hospitalization, Other)
  Sender: FDA-Public Use
  Company Number: TW-PFIZER INC-PV202400008557

PATIENT
  Age: 8 Year
  Sex: Male
  Weight: 20 kg

DRUGS (2)
  1. HYDROCORTISONE SODIUM SUCCINATE [Suspect]
     Active Substance: HYDROCORTISONE SODIUM SUCCINATE
     Indication: Asthma
     Dosage: 5 MG ?KG?DOSE FOUR TIMES DAILY FOR 8 DAYS
     Route: 042
  2. PREDNISOLONE [Suspect]
     Active Substance: PREDNISOLONE
     Indication: Asthma
     Dosage: 1 MG ?KG ?DAY FOR 2 DAYS
     Route: 048

REACTIONS (1)
  - Disseminated varicella zoster virus infection [Recovered/Resolved]
